FAERS Safety Report 5298372-1 (Version None)
Quarter: 2007Q2

REPORT INFORMATION
  Report Type: 
  Country: None (occurrence: None)
  Receive Date: 20070406
  Receipt Date: 20070321
  Transmission Date: 20071010
  Serious: Yes (Hospitalization)
  Sender: FDA-Public Use
  Company Number: S07-FRA-00281-01

PATIENT
  Age: 85 Year
  Sex: Female
  Weight: 48 kg

DRUGS (5)
  1. ESCITALOPRAM [Suspect]
     Indication: DEPRESSION
     Dosage: 5 MG QD PO
     Route: 048
     Dates: start: 20070103, end: 20070112
  2. FUROSEMIDE [Suspect]
     Indication: HYPERTENSION
     Dosage: 10 MG QD PO
     Route: 048
     Dates: start: 20070111
  3. KENZEN (CANDESARTAN CILEXETIL) [Concomitant]
  4. SINTROM [Concomitant]
  5. SOTALOL HCL [Concomitant]

REACTIONS (6)
  - ASTHENIA [None]
  - BLOOD BILIRUBIN INCREASED [None]
  - COGNITIVE DISORDER [None]
  - FALL [None]
  - HYPONATRAEMIA [None]
  - HYPOTENSION [None]
